FAERS Safety Report 8270704-1 (Version None)
Quarter: 2012Q2

REPORT INFORMATION
  Report Type: 
  Country: None (occurrence: None)
  Receive Date: 20120406
  Receipt Date: 20120329
  Transmission Date: 20120825
  Serious: Yes (Other)
  Sender: FDA-Public Use
  Company Number: GER/UKI/12/0023712

PATIENT
  Sex: Male

DRUGS (6)
  1. ATORVASTATIN [Suspect]
  2. FLUOXETINE [Suspect]
  3. GABAPENTIN [Suspect]
  4. ALCOHOL (ETHANOL) [Suspect]
  5. PRADAXA (DABIGATRAN ETEXILATE MESILATE) [Suspect]
     Indication: CEREBROVASCULAR ACCIDENT PROPHYLAXIS
  6. DIAZEPAM [Suspect]

REACTIONS (3)
  - MULTIPLE DRUG OVERDOSE INTENTIONAL [None]
  - VOMITING [None]
  - SUICIDE ATTEMPT [None]
